FAERS Safety Report 16848576 (Version 1)
Quarter: 2019Q3

REPORT INFORMATION
  Report Type: Spontaneous
  Country: JP (occurrence: JP)
  Receive Date: 20190925
  Receipt Date: 20190925
  Transmission Date: 20191005
  Serious: Yes (Hospitalization)
  Sender: FDA-Public Use
  Company Number: JP-TEVA-2019-JP-1112069

PATIENT
  Age: 6 Decade
  Sex: Male

DRUGS (5)
  1. NIVOLUMAB [Suspect]
     Active Substance: NIVOLUMAB
     Indication: HYPOPHARYNGEAL CANCER STAGE IV
     Route: 065
  2. NIVOLUMAB [Suspect]
     Active Substance: NIVOLUMAB
     Indication: TONGUE CARCINOMA STAGE IV
  3. NIVOLUMAB [Suspect]
     Active Substance: NIVOLUMAB
     Indication: MALIGNANT NEOPLASM PROGRESSION
  4. CISPLATIN. [Suspect]
     Active Substance: CISPLATIN
     Indication: HYPOPHARYNGEAL CANCER STAGE IV
  5. CISPLATIN. [Suspect]
     Active Substance: CISPLATIN
     Indication: TONGUE CARCINOMA STAGE IV
     Route: 065

REACTIONS (5)
  - Adrenocorticotropic hormone deficiency [Recovering/Resolving]
  - Hypothyroidism [Unknown]
  - Hypopituitarism [Recovering/Resolving]
  - Adrenal insufficiency [Recovering/Resolving]
  - Gait disturbance [Unknown]
